FAERS Safety Report 5684371-4 (Version None)
Quarter: 2008Q1

REPORT INFORMATION
  Report Type: 
  Country: None (occurrence: None)
  Receive Date: 20080328
  Receipt Date: 20080321
  Transmission Date: 20080703
  Serious: Yes (Hospitalization)
  Sender: FDA-Public Use
  Company Number: B0513782A

PATIENT
  Age: 85 Year
  Sex: Male

DRUGS (12)
  1. ARIXTRA [Suspect]
     Indication: THROMBOSIS PROPHYLAXIS
     Route: 058
     Dates: start: 20080129, end: 20080212
  2. PLAVIX [Suspect]
     Indication: DRUG USE FOR UNKNOWN INDICATION
     Dosage: 75MG PER DAY
     Route: 048
     Dates: end: 20080212
  3. ZYLORIC [Concomitant]
     Dosage: 100MG AT NIGHT
     Route: 048
     Dates: end: 20080212
  4. ACETAMINOPHEN [Concomitant]
     Dosage: 1G THREE TIMES PER DAY
     Route: 048
     Dates: end: 20080212
  5. XATRAL [Concomitant]
     Dosage: 10MG AT NIGHT
     Route: 048
     Dates: end: 20080212
  6. SIMVASTATIN [Concomitant]
     Dosage: 20MG AT NIGHT
     Route: 048
     Dates: end: 20080212
  7. ENALAPRIL MALEATE [Concomitant]
     Dosage: 5MG IN THE MORNING
     Route: 048
     Dates: end: 20080212
  8. LASIX [Concomitant]
     Dosage: 60MG PER DAY
     Route: 048
     Dates: end: 20080212
  9. FORLAX [Concomitant]
     Dosage: 20G PER DAY
     Route: 065
     Dates: end: 20080212
  10. NEURONTIN [Concomitant]
     Dosage: 800MG THREE TIMES PER DAY
     Route: 065
  11. OMEPRAZOLE [Concomitant]
     Dosage: 20MG AT NIGHT
     Route: 065
     Dates: end: 20080212
  12. LANTUS [Concomitant]
     Dosage: 20IU PER DAY
     Route: 065
     Dates: end: 20080212

REACTIONS (6)
  - BLOOD CREATININE INCREASED [None]
  - HAEMOGLOBIN DECREASED [None]
  - HAEMORRHAGE SUBCUTANEOUS [None]
  - MOBILITY DECREASED [None]
  - PAIN IN EXTREMITY [None]
  - SUBCUTANEOUS HAEMATOMA [None]
